FAERS Safety Report 4742582-6 (Version None)
Quarter: 2005Q3

REPORT INFORMATION
  Report Type: 
  Country: None (occurrence: None)
  Receive Date: 20050811
  Receipt Date: 20050420
  Transmission Date: 20060218
  Serious: Yes (Death)
  Sender: FDA-Public Use
  Company Number: DE-ROCHE-402578

PATIENT
  Age: 39 Year
  Sex: Female
  Weight: 64 kg

DRUGS (4)
  1. XELODA [Suspect]
     Route: 048
     Dates: start: 20050322, end: 20050405
  2. PHENHYDAN [Concomitant]
     Route: 048
  3. KEPPRA [Concomitant]
     Route: 048
  4. MST [Concomitant]
     Route: 048

REACTIONS (5)
  - BRAIN DAMAGE [None]
  - DISTURBANCE IN ATTENTION [None]
  - NEOPLASM PROGRESSION [None]
  - NEUROTOXICITY [None]
  - SIMPLE PARTIAL SEIZURES [None]
